FAERS Safety Report 16162229 (Version 2)
Quarter: 2019Q3

REPORT INFORMATION
  Report Type: Report from Study
  Country: JP (occurrence: JP)
  Receive Date: 20190405
  Receipt Date: 20190712
  Transmission Date: 20191004
  Serious: Yes (Death)
  Sender: FDA-Public Use
  Company Number: JP-ACTELION-A-CH2018-182579

PATIENT
  Age: 4 Year
  Sex: Male
  Weight: 10.5 kg

DRUGS (21)
  1. UPTRAVI [Suspect]
     Active Substance: SELEXIPAG
     Dosage: 0.15 MG, BID
     Route: 048
     Dates: start: 20180525, end: 20180610
  2. UPTRAVI [Suspect]
     Active Substance: SELEXIPAG
     Dosage: 0.175 MG, BID
     Route: 048
     Dates: start: 20180611, end: 20180618
  3. ENALART [Concomitant]
     Active Substance: ENALAPRIL MALEATE
     Indication: CONGESTIVE CARDIOMYOPATHY
     Dosage: 2 MG, QD
  4. ASPIRIN. [Concomitant]
     Active Substance: ASPIRIN
     Indication: CORONARY ARTERY SURGERY
     Dosage: 50 MG, QD
  5. TERNELIN [Concomitant]
     Active Substance: TIZANIDINE
     Indication: CEREBRAL PALSY
     Dosage: 1.5 MG, QD
  6. MAGNESIUM OXIDE. [Concomitant]
     Active Substance: MAGNESIUM OXIDE
     Indication: CONSTIPATION
     Dosage: 0.6 G, QD
  7. BELSOMRA [Concomitant]
     Active Substance: SUVOREXANT
     Dosage: 10 MG, QD
  8. UPTRAVI [Suspect]
     Active Substance: SELEXIPAG
     Dosage: 0.225 MG, BID
     Route: 048
     Dates: start: 20180629, end: 20180704
  9. BOSENTAN HYDRATE [Concomitant]
     Indication: PULMONARY ARTERIAL HYPERTENSION
     Dosage: 43.75 MG, QD
  10. FUROSEMIDE. [Concomitant]
     Active Substance: FUROSEMIDE
     Indication: CONGESTIVE CARDIOMYOPATHY
     Dosage: 15 MG, QD
  11. ALDACTONE A [Concomitant]
     Active Substance: SPIRONOLACTONE
     Indication: CONGESTIVE CARDIOMYOPATHY
     Dosage: 15 MG, QD
  12. UPTRAVI [Suspect]
     Active Substance: SELEXIPAG
     Dosage: 0.05 MG, BID
     Route: 048
     Dates: start: 20180417, end: 20180422
  13. ADCIRCA [Concomitant]
     Active Substance: TADALAFIL
     Indication: PULMONARY ARTERIAL HYPERTENSION
     Dosage: 13 MG, QD
  14. GASMOTIN [Concomitant]
     Active Substance: MOSAPRIDE CITRATE
     Indication: CHRONIC GASTRITIS
     Dosage: 4 MG, QD
  15. YOKUKANSAN [Concomitant]
     Active Substance: HERBALS
     Dosage: 2.5 G, QD
  16. UPTRAVI [Suspect]
     Active Substance: SELEXIPAG
     Dosage: 0.075 MG, BID
     Route: 048
     Dates: start: 20180423, end: 20180502
  17. UPTRAVI [Suspect]
     Active Substance: SELEXIPAG
     Indication: PULMONARY ARTERIAL HYPERTENSION
     Dosage: 0.25 MG, BID
     Route: 048
     Dates: start: 20180705, end: 20180829
  18. UPTRAVI [Suspect]
     Active Substance: SELEXIPAG
     Dosage: 0.1 MG, BID
     Route: 048
     Dates: start: 20180503, end: 20180524
  19. UPTRAVI [Suspect]
     Active Substance: SELEXIPAG
     Dosage: 0.2 MG, BID
     Route: 048
     Dates: start: 20180619, end: 20180628
  20. UPTRAVI [Suspect]
     Active Substance: SELEXIPAG
     Dosage: 0.025 MG, BID
     Route: 048
     Dates: start: 20180413, end: 20180416
  21. HORIZON [Concomitant]
     Active Substance: DIAZEPAM
     Dosage: 5 MG, QD

REACTIONS (4)
  - Pulmonary arterial hypertension [Fatal]
  - Vomiting [Fatal]
  - Cardio-respiratory arrest [Fatal]
  - Heart rate increased [Fatal]

NARRATIVE: CASE EVENT DATE: 201808
